FAERS Safety Report 15673284 (Version 6)
Quarter: 2021Q3

REPORT INFORMATION
  Report Type: Spontaneous
  Country: US (occurrence: US)
  Receive Date: 20181129
  Receipt Date: 20210729
  Transmission Date: 20211014
  Serious: No
  Sender: FDA-Public Use
  Company Number: US-PFIZER INC-2016425667

PATIENT
  Age: 54 Year
  Sex: Female

DRUGS (8)
  1. AMITRIPTYLINE [Concomitant]
     Active Substance: AMITRIPTYLINE
     Dosage: 25 MG, 1X/DAY(BED TIME)
  2. XANAX [Concomitant]
     Active Substance: ALPRAZOLAM
     Dosage: 50 MG, DAILY [25MG 2 DAILY]
  3. LYRICA [Suspect]
     Active Substance: PREGABALIN
     Indication: PELVIC PAIN
     Dosage: 225 MG, DAILY [3 DAILY]
  4. LYRICA [Suspect]
     Active Substance: PREGABALIN
     Dosage: UNK
  5. OXYCODONE [Concomitant]
     Active Substance: OXYCODONE
     Dosage: 5 MG, 4X/DAY(EVERY 6 HOURS)
  6. ESTRADIOL. [Concomitant]
     Active Substance: ESTRADIOL
     Dosage: 0.05 MG, WEEKLY(1 WEEKLY)
  7. LYRICA [Suspect]
     Active Substance: PREGABALIN
     Dosage: 75 MG, 3X/DAY (90 DAYS)
     Route: 048
  8. LYRICA [Suspect]
     Active Substance: PREGABALIN
     Dosage: 75 MG, (BID?TID)

REACTIONS (3)
  - Therapeutic response unexpected [Unknown]
  - Peripheral swelling [Unknown]
  - Pain [Unknown]
